FAERS Safety Report 16006294 (Version 2)
Quarter: 2019Q2

REPORT INFORMATION
  Report Type: Spontaneous
  Country: CA (occurrence: CA)
  Receive Date: 20190226
  Receipt Date: 20190405
  Transmission Date: 20190711
  Serious: Yes (Death, Hospitalization)
  Sender: FDA-Public Use
  Company Number: CA-PFIZER INC-2019087229

PATIENT
  Age: 59 Year
  Sex: Male

DRUGS (6)
  1. HYDROMORPHONE [HYDROMORPHONE HYDROCHLORIDE] [Concomitant]
     Dosage: 2 MG, UNK
  2. PANTOPRAZOLE [PANTOPRAZOLE SODIUM SESQUIHYDRATE] [Concomitant]
     Dosage: UNK
  3. DEXAMETHASONE PHOSPHATE [DEXAMETHASONE SODIUM PHOSPHATE] [Concomitant]
     Dosage: 0.5 MG, UNK
  4. INLYTA [Suspect]
     Active Substance: AXITINIB
     Indication: METASTATIC RENAL CELL CARCINOMA
     Dosage: 50 MG, UNK
     Dates: start: 20180430
  5. HYDROMORPH [Concomitant]
     Active Substance: HYDROMORPHONE
     Dosage: 1 MG PRN( AS NEEDED)
  6. RAN CEFPROZIL [Concomitant]
     Dosage: 250 MG, 2X/DAY

REACTIONS (1)
  - Neoplasm progression [Fatal]

NARRATIVE: CASE EVENT DATE: 20180618
